FAERS Safety Report 13615802 (Version 3)
Quarter: 2017Q3

REPORT INFORMATION
  Report Type: Spontaneous
  Country: US (occurrence: US)
  Receive Date: 20170606
  Receipt Date: 20170719
  Transmission Date: 20171127
  Serious: Yes (Other)
  Sender: FDA-Public Use
  Company Number: US-PFIZER INC-2017242763

PATIENT
  Age: 65 Year
  Sex: Male
  Weight: 116 kg

DRUGS (2)
  1. TIKOSYN [Suspect]
     Active Substance: DOFETILIDE
     Indication: CARDIAC DISORDER
     Dosage: 500 UG, 2X/DAY
     Route: 048
     Dates: start: 20140922, end: 201702
  2. TIKOSYN [Suspect]
     Active Substance: DOFETILIDE
     Dosage: 0.5 MG, UNK

REACTIONS (4)
  - Bronchitis [Unknown]
  - Influenza [Unknown]
  - Viral infection [Unknown]
  - Pneumonia [Unknown]

NARRATIVE: CASE EVENT DATE: 201612
